FAERS Safety Report 7922082-2 (Version None)
Quarter: 2011Q4

REPORT INFORMATION
  Report Type: 
  Country: None (occurrence: None)
  Receive Date: 20111117
  Receipt Date: 20111108
  Transmission Date: 20120403
  Serious: Yes (Hospitalization)
  Sender: FDA-Public Use
  Company Number: US-ASTRAZENECA-2011SE61002

PATIENT
  Age: 62 Year
  Sex: Female

DRUGS (2)
  1. NEXIUM [Suspect]
     Route: 048
  2. FIORINAL W/CODEINE [Suspect]

REACTIONS (2)
  - FOREIGN BODY [None]
  - DYSPHAGIA [None]
